FAERS Safety Report 12250371 (Version 2)
Quarter: 2016Q2

REPORT INFORMATION
  Report Type: Spontaneous
  Country: DK (occurrence: DK)
  Receive Date: 20160408
  Receipt Date: 20160413
  Transmission Date: 20160815
  Serious: Yes (Hospitalization)
  Sender: FDA-Public Use
  Company Number: PHHY2016DK044385

PATIENT
  Age: 49 Year
  Sex: Male

DRUGS (3)
  1. BIOCLAVID [Suspect]
     Active Substance: AMOXICILLIN\CLAVULANIC ACID
     Indication: PHARYNGITIS
     Dosage: UNK
     Route: 048
     Dates: start: 20141128
  2. AVAMYS [Concomitant]
     Active Substance: FLUTICASONE FUROATE
     Indication: PRODUCT USED FOR UNKNOWN INDICATION
     Route: 065
  3. AVAMYS [Concomitant]
     Active Substance: FLUTICASONE FUROATE
     Route: 045
     Dates: start: 20141215

REACTIONS (8)
  - Dialysis [Recovered/Resolved]
  - Liver injury [Recovered/Resolved]
  - Plasmapheresis [Recovered/Resolved]
  - Jaundice [Recovered/Resolved]
  - Diarrhoea [Recovered/Resolved]
  - Hepatotoxicity [Recovered/Resolved]
  - Alanine aminotransferase increased [Recovered/Resolved]
  - Hepatitis [Recovered/Resolved]

NARRATIVE: CASE EVENT DATE: 201412
